FAERS Safety Report 9327613 (Version 2)
Quarter: 2013Q2

REPORT INFORMATION
  Report Type: Report from Study
  Country: FR (occurrence: FR)
  Receive Date: 20130604
  Receipt Date: 20130627
  Transmission Date: 20140414
  Serious: Yes (Hospitalization)
  Sender: FDA-Public Use
  Company Number: FR-PFIZER INC-2009288342

PATIENT
  Age: 51 Year
  Sex: Male
  Weight: 88 kg

DRUGS (5)
  1. IRINOTECAN HCL [Suspect]
     Indication: ADENOCARCINOMA GASTRIC
     Dosage: 360 MG, UNK
     Route: 042
     Dates: start: 20090812, end: 20090814
  2. FLUOROURACIL [Suspect]
     Indication: ADENOCARCINOMA GASTRIC
     Dosage: 5600 MG, UNK
     Route: 042
     Dates: start: 20090812, end: 20090814
  3. FOLINIC ACID [Suspect]
     Indication: ADENOCARCINOMA GASTRIC
     Dosage: 800 MG, UNK
     Route: 042
     Dates: start: 20090812, end: 20090812
  4. KARDEGIC [Concomitant]
     Indication: CORONARY ARTERY INSUFFICIENCY
     Dosage: 75 MG, 1X/DAY
     Route: 048
     Dates: start: 2000
  5. BYETTA [Concomitant]
     Indication: TYPE 2 DIABETES MELLITUS
     Dosage: 20 MG, 1X/DAY
     Route: 058

REACTIONS (4)
  - Dysphagia [Recovered/Resolved]
  - Vomiting [Recovered/Resolved]
  - Nausea [Recovered/Resolved]
  - Decreased appetite [Recovered/Resolved]
